FAERS Safety Report 6455829-5 (Version None)
Quarter: 2009Q4

REPORT INFORMATION
  Report Type: 
  Country: None (occurrence: None)
  Receive Date: 20091125
  Receipt Date: 20090908
  Transmission Date: 20100525
  Serious: No
  Sender: FDA-Public Use
  Company Number: US-ABBOTT-09P-163-0595707-00

PATIENT
  Age: 72 Year
  Sex: Female

DRUGS (8)
  1. SIMCOR [Suspect]
     Indication: HIGH DENSITY LIPOPROTEIN DECREASED
     Dosage: 500 MG/20 MG AT BEDTIME
     Route: 048
  2. SIMCOR [Suspect]
     Indication: LOW DENSITY LIPOPROTEIN INCREASED
  3. ARIMIDEX [Concomitant]
     Indication: DRUG USE FOR UNKNOWN INDICATION
  4. CALCIUM [Concomitant]
     Indication: DRUG USE FOR UNKNOWN INDICATION
  5. FISH OIL [Concomitant]
     Indication: DRUG USE FOR UNKNOWN INDICATION
     Route: 048
  6. IRON [Concomitant]
     Indication: DRUG USE FOR UNKNOWN INDICATION
  7. CRANBERRY [Concomitant]
     Indication: DRUG USE FOR UNKNOWN INDICATION
     Dosage: PILL
  8. SULFA TYPE PILL [Concomitant]
     Indication: URINARY TRACT INFECTION

REACTIONS (2)
  - FLUSHING [None]
  - SKIN BURNING SENSATION [None]
